FAERS Safety Report 8450148-X (Version None)
Quarter: 2012Q2

REPORT INFORMATION
  Report Type: 
  Country: None (occurrence: None)
  Receive Date: 20120620
  Receipt Date: 20120608
  Transmission Date: 20120825
  Serious: Yes (Other)
  Sender: FDA-Public Use
  Company Number: RO-JNJFOC-20120602798

PATIENT
  Sex: Male

DRUGS (3)
  1. ABACAVIR SULFATE/LAMIVUDINE [Concomitant]
     Indication: HIV INFECTION
     Route: 048
  2. INTELENCE [Suspect]
     Indication: HIV INFECTION
     Route: 048
  3. PREZISTA [Concomitant]
     Indication: HIV INFECTION
     Route: 048

REACTIONS (1)
  - HEPATITIS B [None]
